FAERS Safety Report 15274972 (Version 2)
Quarter: 2018Q4

REPORT INFORMATION
  Report Type: Spontaneous
  Country: US (occurrence: US)
  Receive Date: 20180814
  Receipt Date: 20181010
  Transmission Date: 20190204
  Serious: Yes (Hospitalization, Other)
  Sender: FDA-Public Use
  Company Number: US-JNJFOC-20180806136

PATIENT
  Age: 64 Year
  Sex: Female

DRUGS (5)
  1. CLOBETASOL [Interacting]
     Active Substance: CLOBETASOL
     Indication: ECZEMA
     Route: 061
  2. TRIAMCINOLONE [Interacting]
     Active Substance: TRIAMCINOLONE
     Indication: ECZEMA
     Route: 061
  3. FLUOCINONIDE. [Interacting]
     Active Substance: FLUOCINONIDE
     Indication: ECZEMA
     Route: 061
  4. KETOCONAZOLE. [Suspect]
     Active Substance: KETOCONAZOLE
     Indication: ECZEMA
     Route: 061
  5. ECONAZOLE. [Interacting]
     Active Substance: ECONAZOLE NITRATE
     Indication: ECZEMA
     Route: 061

REACTIONS (3)
  - Hypothalamic pituitary adrenal axis suppression [Recovering/Resolving]
  - Drug interaction [Recovering/Resolving]
  - Adrenal insufficiency [Recovering/Resolving]
